APPROVED DRUG PRODUCT: DIAZOXIDE
Active Ingredient: DIAZOXIDE
Strength: 15MG/ML
Dosage Form/Route: INJECTABLE;INJECTION
Application: A071519 | Product #001
Applicant: ABRAXIS PHARMACEUTICAL PRODUCTS
Approved: Aug 26, 1987 | RLD: No | RS: No | Type: DISCN